FAERS Safety Report 7345657-0 (Version None)
Quarter: 2011Q1

REPORT INFORMATION
  Report Type: 
  Country: None (occurrence: None)
  Receive Date: 20110310
  Receipt Date: 20110304
  Transmission Date: 20110831
  Serious: Yes (Hospitalization)
  Sender: FDA-Public Use
  Company Number: B0699181A

PATIENT
  Age: 55 Year
  Sex: Female

DRUGS (5)
  1. LIPITOR [Concomitant]
  2. AVANDIA [Suspect]
     Indication: DIABETES MELLITUS
     Dosage: 8MG PER DAY
     Route: 048
     Dates: start: 20000301, end: 20070501
  3. GLUCOPHAGE [Concomitant]
  4. LOTENSIN [Concomitant]
  5. GLUCOTROL [Concomitant]

REACTIONS (4)
  - CORONARY ARTERIAL STENT INSERTION [None]
  - ISCHAEMIC CARDIOMYOPATHY [None]
  - CARDIAC FAILURE CONGESTIVE [None]
  - CORONARY ARTERY DISEASE [None]
